FAERS Safety Report 15951051 (Version 1)
Quarter: 2019Q1

REPORT INFORMATION
  Report Type: Spontaneous
  Country: US (occurrence: US)
  Receive Date: 20190212
  Receipt Date: 20190212
  Transmission Date: 20190417
  Serious: Yes (Hospitalization)
  Sender: FDA-Public Use
  Company Number: US-PFIZER INC-2019055743

PATIENT
  Age: 23 Year
  Sex: Male

DRUGS (3)
  1. ETOPOSIDE. [Suspect]
     Active Substance: ETOPOSIDE
     Indication: TESTICULAR GERM CELL TUMOUR MIXED STAGE I
     Dosage: EVERY 3 WEEKS FOR THREE CONSECUTIVE CYCLES
  2. BLEOMYCIN SULFATE [Suspect]
     Active Substance: BLEOMYCIN SULFATE
     Indication: TESTICULAR GERM CELL TUMOUR MIXED STAGE I
     Dosage: EVERY 3 WEEKS FOR THREE CONSECUTIVE CYCLES
  3. CISPLATIN. [Suspect]
     Active Substance: CISPLATIN
     Indication: TESTICULAR GERM CELL TUMOUR MIXED STAGE I
     Dosage: EVERY 3 WEEKS FOR THREE CONSECUTIVE CYCLES

REACTIONS (1)
  - Febrile neutropenia [Unknown]
